FAERS Safety Report 8756407 (Version 3)
Quarter: 2013Q1

REPORT INFORMATION
  Report Type: Spontaneous
  Country: US (occurrence: US)
  Receive Date: 20120828
  Receipt Date: 20130111
  Transmission Date: 20140127
  Serious: No
  Sender: FDA-Public Use
  Company Number: US-009507513-1208USA009664

PATIENT
  Age: 84 Year
  Sex: Female

DRUGS (1)
  1. NASONEX [Suspect]
     Indication: RHINITIS
     Dosage: 1 DF, QD
     Route: 045

REACTIONS (4)
  - Drug dose omission [Unknown]
  - Product quality issue [Recovered/Resolved]
  - Muscle strain [Recovering/Resolving]
  - Intervertebral disc injury [Recovering/Resolving]
